FAERS Safety Report 7759434-X (Version None)
Quarter: 2011Q3

REPORT INFORMATION
  Report Type: 
  Country: None (occurrence: None)
  Receive Date: 20110919
  Receipt Date: 20110916
  Transmission Date: 20111222
  Serious: Yes (Hospitalization)
  Sender: FDA-Public Use
  Company Number: SE-ROCHE-792918

PATIENT
  Sex: Female

DRUGS (8)
  1. ALENAT [Concomitant]
  2. TRAMADOL HCL [Concomitant]
  3. DIAZEPAM [Concomitant]
  4. KLOROKIN [Suspect]
     Indication: RHEUMATOID ARTHRITIS
     Route: 048
  5. ACETAMINOPHEN [Concomitant]
  6. ACTEMRA [Suspect]
     Indication: RHEUMATOID ARTHRITIS
     Dosage: DOSE AMOUNT: 20 MG/ML, M M
     Route: 042
     Dates: start: 20100401, end: 20110705
  7. METHOTREXATE [Suspect]
     Indication: RHEUMATOID ARTHRITIS
     Dosage: DOSE: W W
     Route: 048
  8. IBUPROFEN [Concomitant]

REACTIONS (1)
  - INTRA-ABDOMINAL HAEMORRHAGE [None]
